FAERS Safety Report 9514658 (Version 2)
Quarter: 2014Q1

REPORT INFORMATION
  Report Type: Spontaneous
  Country: US (occurrence: None)
  Receive Date: 20130305
  Receipt Date: 20140306
  Transmission Date: 20141002
  Serious: Yes (Hospitalization, Disabling, Other)
  Sender: FDA-Public Use
  Company Number: 163-21880-12123094

PATIENT
  Age: 65 Year
  Sex: Female

DRUGS (9)
  1. REVLIMID (LENALIDOMIDE)(10 MILLIGRAM, CAPSULES) [Suspect]
     Indication: MYELODYSPLASTIC SYNDROME
     Route: 048
     Dates: start: 20100413
  2. REVLIMID (LENALIDOMIDE)(10 MILLIGRAM, CAPSULES) [Suspect]
     Indication: LEUKAEMIA
     Route: 048
     Dates: start: 20100413
  3. DICYCLOMINE (DICYCLOVERINE HYDROCHLORIDE) [Concomitant]
  4. DIPHENOXYLATE/ATROPINE (LOMOTIL) [Concomitant]
  5. IBUPROFEN (IBUPROFEN) [Concomitant]
  6. LEVOTHYROXINE (LEVOTHYROXINE) [Concomitant]
  7. ASA (ACETYLSALICYLIC ACID) [Concomitant]
  8. VITAMIN B12 (CYANOCOBALAMIN) [Concomitant]
  9. PROCRIT (ERYTHROPOIETIN) [Concomitant]

REACTIONS (4)
  - Acute myeloid leukaemia [None]
  - Acute myeloid leukaemia [None]
  - White blood cell count decreased [None]
  - Neutrophil count decreased [None]
